FAERS Safety Report 12071598 (Version 3)
Quarter: 2016Q1

REPORT INFORMATION
  Report Type: Spontaneous
  Country: CA (occurrence: CA)
  Receive Date: 20160212
  Receipt Date: 20160226
  Transmission Date: 20160526
  Serious: Yes (Hospitalization)
  Sender: FDA-Public Use
  Company Number: CA-AMGEN-CANSP2016016736

PATIENT
  Age: 59 Year
  Sex: Female

DRUGS (21)
  1. DEMEROL [Concomitant]
     Active Substance: MEPERIDINE HYDROCHLORIDE
     Dosage: 50 MG, ONE TIME DOSE
     Route: 042
     Dates: start: 20160119, end: 20160119
  2. OBINUTUZUMAB [Suspect]
     Active Substance: OBINUTUZUMAB
     Dosage: 975 MG, C1D2. TEMPORARILY INTERRUPTED ON 26/JAN/2016.
     Route: 042
     Dates: start: 20160120, end: 20160120
  3. FLUDARABINE [Suspect]
     Active Substance: FLUDARABINE PHOSPHATE
     Dosage: C1D3 25 MG/M2
     Route: 042
     Dates: start: 20160121, end: 20160121
  4. FLUDARABINE [Suspect]
     Active Substance: FLUDARABINE PHOSPHATE
     Indication: CHRONIC LYMPHOCYTIC LEUKAEMIA
     Dosage: C1D1 25 MG/M2
     Route: 042
     Dates: start: 20160119, end: 20160119
  5. FLUDARABINE [Suspect]
     Active Substance: FLUDARABINE PHOSPHATE
     Dosage: C1D2 25 MG/M2
     Route: 042
     Dates: start: 20160120, end: 20160120
  6. CYCLOPHOSPHAMIDE. [Suspect]
     Active Substance: CYCLOPHOSPHAMIDE
     Dosage: C1D2 250 MG/M2
     Route: 042
     Dates: start: 20160120, end: 20160120
  7. CYCLOPHOSPHAMIDE. [Suspect]
     Active Substance: CYCLOPHOSPHAMIDE
     Dosage: C1D3 250 MG/M2
     Route: 042
     Dates: start: 20160121, end: 20160121
  8. SEPTRA [Concomitant]
     Active Substance: SULFAMETHOXAZOLE\TRIMETHOPRIM
     Dosage: 160/800MG, EVERY MONDAY, WEDNESDAY AND FRIDAY
     Route: 048
     Dates: start: 20160118
  9. MONTELUKAST [Concomitant]
     Active Substance: MONTELUKAST SODIUM
     Dosage: 12 HOUR AND 1 HOUR BEFORE C1D1 DOSE 10 MG,
     Route: 048
     Dates: start: 20160118, end: 20160118
  10. CALCIUM CARBONATE. [Concomitant]
     Active Substance: CALCIUM CARBONATE
     Dosage: 3750 MG, 3 IN 1 D
     Route: 048
     Dates: start: 20160127
  11. OBINUTUZUMAB [Suspect]
     Active Substance: OBINUTUZUMAB
     Indication: CHRONIC LYMPHOCYTIC LEUKAEMIA
     Dosage: C1D1 TEMPORARILY INTERRUPTED ON 26/JAN/2016 DUE TO INFUSION RELATED REACTION, 25 MG
     Route: 042
     Dates: start: 20160119, end: 20160119
  12. DEXAMETHASONE. [Concomitant]
     Active Substance: DEXAMETHASONE
     Dosage: 20 MG, ONE TIME DOSE
     Route: 042
     Dates: start: 20160118, end: 20160118
  13. FUROSEMIDE SODIUM [Concomitant]
     Active Substance: FUROSEMIDE SODIUM
     Dosage: 20 MG, ONE TIME DOSE
     Route: 042
     Dates: start: 20160121, end: 20160121
  14. CYCLOPHOSPHAMIDE. [Suspect]
     Active Substance: CYCLOPHOSPHAMIDE
     Indication: CHRONIC LYMPHOCYTIC LEUKAEMIA
     Dosage: C1D1 250 MG/M2
     Route: 042
     Dates: start: 20160119, end: 20160119
  15. ACICLOVIR [Concomitant]
     Active Substance: ACYCLOVIR
     Dosage: 400 MG, 2 IN 1 D
     Route: 048
     Dates: start: 20150118
  16. DEXAMETHASONE. [Concomitant]
     Active Substance: DEXAMETHASONE
     Dosage: 8 MG, DAY 3-5
     Route: 048
     Dates: start: 20160121
  17. ACETAMINOPHEN. [Concomitant]
     Active Substance: ACETAMINOPHEN
     Dosage: PRE-OBINUTUZUMAB, 650 MG
     Route: 048
     Dates: start: 20160119, end: 20160119
  18. RED BLOOD CELLS [Concomitant]
     Active Substance: HUMAN RED BLOOD CELL
     Dosage: 2 DF, ONE TIME DOSE
     Route: 042
     Dates: start: 20160121, end: 20160121
  19. NEUPOGEN [Suspect]
     Active Substance: FILGRASTIM
     Indication: PRODUCT USED FOR UNKNOWN INDICATION
     Dosage: 300 MCG, 1 IN 1 D
     Route: 058
     Dates: start: 20160126, end: 20160204
  20. ALLOPURINOL. [Concomitant]
     Active Substance: ALLOPURINOL
     Dosage: 300 MG, QD
     Route: 048
     Dates: start: 20160118
  21. DEXAMETHASONE. [Concomitant]
     Active Substance: DEXAMETHASONE
     Dosage: PRE-CHEMOTHERAPY DAY 1 AND DAY 2, 20 MG
     Route: 042
     Dates: start: 20160119

REACTIONS (1)
  - Febrile neutropenia [Recovered/Resolved with Sequelae]

NARRATIVE: CASE EVENT DATE: 20160126
